FAERS Safety Report 14298602 (Version 2)
Quarter: 2017Q4

REPORT INFORMATION
  Report Type: Spontaneous
  Country: DE (occurrence: DE)
  Receive Date: 20171218
  Receipt Date: 20171229
  Transmission Date: 20180321
  Serious: Yes (Hospitalization)
  Sender: FDA-Public Use
  Company Number: DE-PFIZER INC-2017537247

PATIENT
  Age: 67 Year
  Sex: Female

DRUGS (1)
  1. RAMIPRIL. [Suspect]
     Active Substance: RAMIPRIL
     Dosage: UNK
     Route: 048
     Dates: start: 201404, end: 201409

REACTIONS (3)
  - Hypertensive crisis [Unknown]
  - Atrial fibrillation [Unknown]
  - Cough [Unknown]

NARRATIVE: CASE EVENT DATE: 201409
